FAERS Safety Report 15988926 (Version 1)
Quarter: 2019Q1

REPORT INFORMATION
  Report Type: Spontaneous
  Country: FR (occurrence: FR)
  Receive Date: 20190221
  Receipt Date: 20190221
  Transmission Date: 20190418
  Serious: Yes (Hospitalization, Other)
  Sender: FDA-Public Use
  Company Number: FR-AUROBINDO-AUR-APL-2019-008935

PATIENT

DRUGS (4)
  1. VANCOMYCINE [Suspect]
     Active Substance: VANCOMYCIN
     Indication: INFECTION
     Dosage: UNK
     Route: 042
     Dates: start: 20181123, end: 20181206
  2. MEROPENEM. [Suspect]
     Active Substance: MEROPENEM
     Indication: INFECTION
     Dosage: UNK
     Route: 042
     Dates: start: 20181202, end: 20181209
  3. COLISTIN SULFATE [Suspect]
     Active Substance: COLISTIN SULFATE
     Indication: INFECTION
     Dosage: UNK
     Route: 042
     Dates: start: 20181202, end: 20181209
  4. TRIFLUCAN [Suspect]
     Active Substance: FLUCONAZOLE
     Indication: INFECTION
     Dosage: UNK
     Route: 042
     Dates: start: 20181202, end: 20181209

REACTIONS (2)
  - Toxic skin eruption [Recovered/Resolved]
  - Dermatitis bullous [Not Recovered/Not Resolved]

NARRATIVE: CASE EVENT DATE: 20181202
